FAERS Safety Report 24348516 (Version 7)
Quarter: 2025Q3

REPORT INFORMATION
  Report Type: Report from Study
  Country: US (occurrence: US)
  Receive Date: 20240923
  Receipt Date: 20250905
  Transmission Date: 20251021
  Serious: Yes (Hospitalization, Other)
  Sender: UCB
  Company Number: US-UCBSA-2024021211

PATIENT
  Age: 2 Year
  Sex: Female
  Weight: 11.5 kg

DRUGS (6)
  1. FINTEPLA [Suspect]
     Active Substance: FENFLURAMINE
     Indication: Lennox-Gastaut syndrome
     Dosage: 1.8 MILLILITER, 2X/DAY (BID)
     Route: 048
     Dates: start: 20230926
  2. FINTEPLA [Suspect]
     Active Substance: FENFLURAMINE
     Dosage: 1 MILLILITER, 2X/DAY (BID)
     Route: 048
  3. FINTEPLA [Suspect]
     Active Substance: FENFLURAMINE
     Dosage: 1.8 MILLILITER, 2X/DAY (BID)
     Route: 048
  4. FINTEPLA [Suspect]
     Active Substance: FENFLURAMINE
     Dosage: 2 MILLILITER, 2X/DAY (BID), PER G TUBE
  5. FINTEPLA [Suspect]
     Active Substance: FENFLURAMINE
     Dosage: 7.04 MILLIGRAM, ONCE DAILY (QD)
  6. FINTEPLA [Suspect]
     Active Substance: FENFLURAMINE

REACTIONS (3)
  - Pneumonia [Recovered/Resolved]
  - Seizure [Recovered/Resolved]
  - Mitral valve incompetence [Not Recovered/Not Resolved]

NARRATIVE: CASE EVENT DATE: 20240426
